FAERS Safety Report 4288510-1 (Version None)
Quarter: 2004Q1

REPORT INFORMATION
  Report Type: 
  Country: None (occurrence: None)
  Receive Date: 20040205
  Receipt Date: 20040115
  Transmission Date: 20041129
  Serious: Yes (Other)
  Sender: FDA-Public Use
  Company Number: FR_040103431

PATIENT
  Age: 16 Year
  Sex: Male

DRUGS (4)
  1. ZYPREXA [Suspect]
     Indication: PSYCHOTIC DISORDER
     Dosage: 40 MG/DAY
     Dates: start: 20040112, end: 20040119
  2. CHLORPROMAZINE [Concomitant]
  3. LOXAPINE SUCCINATE [Concomitant]
  4. LITHIUM CARBONATE [Concomitant]

REACTIONS (3)
  - CHOLESTASIS [None]
  - FUNGAL OESOPHAGITIS [None]
  - ORAL FUNGAL INFECTION [None]
